FAERS Safety Report 7093048-2 (Version None)
Quarter: 2010Q4

REPORT INFORMATION
  Report Type: 
  Country: None (occurrence: None)
  Receive Date: 20101105
  Receipt Date: 20101105
  Transmission Date: 20110411
  Serious: No
  Sender: FDA-Public Use
  Company Number: None

PATIENT
  Age: 26 Year
  Sex: Female

DRUGS (1)
  1. CKLS [Suspect]
     Indication: LIVER INJURY
     Dates: start: 20060128, end: 20080815

REACTIONS (2)
  - HEPATITIS E [None]
  - HEPATOTOXICITY [None]
